FAERS Safety Report 21278811 (Version 4)
Quarter: 2023Q4

REPORT INFORMATION
  Report Type: Other
  Country: US (occurrence: None)
  Receive Date: 20220901
  Receipt Date: 20231009
  Transmission Date: 20240110
  Serious: Yes (Other)
  Sender: FDA-Public Use
  Company Number: US-ROCHE-3166940

PATIENT
  Age: 57 Year
  Sex: Female
  Weight: 110.78 kg

DRUGS (2)
  1. OCREVUS [Suspect]
     Active Substance: OCRELIZUMAB
     Indication: Relapsing-remitting multiple sclerosis
     Route: 042
     Dates: start: 20200904, end: 20200918
  2. OCREVUS [Suspect]
     Active Substance: OCRELIZUMAB
     Dosage: SUBSEQUENT DOSES OF OCRELIZUMAB: 01/OCT/2021, 04/APR/2022, 13/OCT/2022
     Route: 042
     Dates: start: 20210305

REACTIONS (9)
  - Nephrolithiasis [Recovered/Resolved]
  - Thyroid cyst [Unknown]
  - Renal cyst [Unknown]
  - Urinary tract infection [Unknown]
  - Fall [Unknown]
  - Cough [Unknown]
  - COVID-19 [Unknown]
  - Illness [Unknown]
  - Pneumonia bacterial [Unknown]

NARRATIVE: CASE EVENT DATE: 20211222
